FAERS Safety Report 5872512-5 (Version None)
Quarter: 2008Q3

REPORT INFORMATION
  Report Type: 
  Country: None (occurrence: None)
  Receive Date: 20080905
  Receipt Date: 20070913
  Transmission Date: 20090109
  Serious: Yes (Disabling, Other)
  Sender: FDA-Public Use
  Company Number: GB-JNJCH-2008022228

PATIENT
  Sex: Male

DRUGS (1)
  1. NICORETTE [Suspect]
     Indication: SMOKING CESSATION THERAPY
     Dosage: TEXT:15 MG FOR APPROXIMATELY 24 HOURS
     Route: 062

REACTIONS (7)
  - CATAPLEXY [None]
  - DISABILITY [None]
  - HYPOTONIA [None]
  - INSOMNIA [None]
  - MYALGIA [None]
  - NARCOLEPSY [None]
  - NIGHTMARE [None]
